FAERS Safety Report 12329826 (Version 1)
Quarter: 2016Q2

REPORT INFORMATION
  Report Type: Report from Study
  Country: ES (occurrence: ES)
  Receive Date: 20160503
  Receipt Date: 20160503
  Transmission Date: 20160815
  Serious: Yes (Death, Hospitalization)
  Sender: FDA-Public Use
  Company Number: PHHO2015ES015719

PATIENT
  Age: 39 Year
  Sex: Female

DRUGS (4)
  1. OFATUMUMAB [Suspect]
     Active Substance: OFATUMUMAB
     Dosage: 1000 MG ON DAY 22 AND 29
     Route: 042
     Dates: end: 20150328
  2. ERTAPENEM [Concomitant]
     Active Substance: ERTAPENEM
     Indication: FEBRILE NEUTROPENIA
     Dosage: 4 G, UNK
     Route: 042
     Dates: start: 20151031, end: 20151106
  3. OFATUMUMAB [Suspect]
     Active Substance: OFATUMUMAB
     Indication: NON-HODGKIN^S LYMPHOMA
     Dosage: 300 MG ON DAY 1
     Route: 042
     Dates: start: 20150227
  4. OFATUMUMAB [Suspect]
     Active Substance: OFATUMUMAB
     Dosage: 2000 MG ON DAY 8 AND 15
     Route: 042

REACTIONS (2)
  - Toxoplasmosis [Not Recovered/Not Resolved]
  - Epilepsy [Fatal]

NARRATIVE: CASE EVENT DATE: 20150528
